FAERS Safety Report 10461660 (Version 4)
Quarter: 2015Q4

REPORT INFORMATION
  Report Type: Report from Study
  Country: JP (occurrence: JP)
  Receive Date: 20140918
  Receipt Date: 20151001
  Transmission Date: 20160304
  Serious: Yes (Other)
  Sender: FDA-Public Use
  Company Number: JP-SHIONOGI, INC-2014000906

PATIENT
  Age: 15 Year
  Sex: Male
  Weight: 58.5 kg

DRUGS (8)
  1. TARGOCID [Concomitant]
     Active Substance: TEICOPLANIN
     Indication: SEPSIS
     Dosage: 400 MG, QD
     Route: 065
     Dates: start: 20131224, end: 20140107
  2. GRAN [Concomitant]
     Active Substance: FILGRASTIM
     Indication: BONE MARROW FAILURE
     Dosage: 75 ?G, QD
     Route: 065
     Dates: start: 20131227, end: 20140102
  3. VENILON [Concomitant]
     Active Substance: HUMAN IMMUNOGLOBULIN G
     Indication: SEPSIS
     Dosage: 5 G, QD
     Route: 065
     Dates: start: 20131228, end: 20131228
  4. VFEND [Suspect]
     Active Substance: VORICONAZOLE
     Indication: SEPSIS
     Dosage: 360 MG, BID
     Route: 065
     Dates: start: 20131228, end: 20131229
  5. MEROPEN                            /01250501/ [Concomitant]
     Active Substance: MEROPENEM
     Indication: SEPSIS
     Dosage: 1 G, TID
     Route: 065
     Dates: start: 20131225, end: 20131228
  6. FUNGUARD [Concomitant]
     Active Substance: MICAFUNGIN SODIUM
     Indication: SEPSIS
     Dosage: 150 MG, QD
     Route: 065
     Dates: start: 20131230, end: 20140107
  7. NEOPHAGEN                          /00467204/ [Concomitant]
     Active Substance: CYSTEINE\GLYCINE\GLYCYRRHIZIN
     Indication: HEPATIC FUNCTION ABNORMAL
     Dosage: 40 ML, UNK
     Route: 065
     Dates: start: 20131230, end: 20140117
  8. FINIBAX [Suspect]
     Active Substance: DORIPENEM MONOHYDRATE
     Indication: SEPSIS
     Dosage: 1 G, TID
     Route: 041
     Dates: start: 20131228, end: 20140107

REACTIONS (1)
  - Hepatic function abnormal [Recovered/Resolved]

NARRATIVE: CASE EVENT DATE: 20131231
